FAERS Safety Report 9376480 (Version 2)
Quarter: 2013Q3

REPORT INFORMATION
  Report Type: Spontaneous
  Country: US (occurrence: US)
  Receive Date: 20130701
  Receipt Date: 20130705
  Transmission Date: 20140515
  Serious: No
  Sender: FDA-Public Use
  Company Number: US-PFIZER INC-2013191383

PATIENT
  Age: 64 Year
  Sex: Female
  Weight: 61.22 kg

DRUGS (3)
  1. AVINZA [Suspect]
     Indication: PAIN
     Dosage: 60 MG, DAILY
     Dates: start: 2007
  2. TRAMADOL HYDROCHLORIDE [Suspect]
     Dosage: 6-8 TABLETS, UNK
  3. LEVOTHYROXINE SODIUM [Concomitant]
     Indication: THYROID DISORDER
     Dosage: UNK, 1X/DAY

REACTIONS (6)
  - Gastrooesophageal reflux disease [Unknown]
  - Activities of daily living impaired [Unknown]
  - Dysstasia [Unknown]
  - Dyspepsia [Unknown]
  - Sensation of heaviness [Unknown]
  - Drug ineffective [Unknown]
